FAERS Safety Report 9996372 (Version 1)
Quarter: 2014Q1

REPORT INFORMATION
  Report Type: Spontaneous
  Country: US (occurrence: US)
  Receive Date: 20140311
  Receipt Date: 20140311
  Transmission Date: 20141002
  Serious: Yes (Hospitalization)
  Sender: FDA-Public Use
  Company Number: US-GLAXOSMITHKLINE-A1064368A

PATIENT
  Age: 67 Year
  Sex: Male

DRUGS (1)
  1. COREG CR [Suspect]
     Indication: CARDIAC DISORDER
     Dosage: 20MG UNKNOWN
     Route: 065
     Dates: start: 20090311

REACTIONS (1)
  - Investigation [Unknown]
